FAERS Safety Report 6766854-9 (Version None)
Quarter: 2010Q2

REPORT INFORMATION
  Report Type: 
  Country: None (occurrence: None)
  Receive Date: 20100611
  Receipt Date: 20100601
  Transmission Date: 20101027
  Serious: Yes (Hospitalization)
  Sender: FDA-Public Use
  Company Number: FR-WYE-H15532410

PATIENT
  Age: 89 Year
  Sex: Male

DRUGS (7)
  1. CORDARONE [Suspect]
     Dosage: 200 MG TABLET (DOSE AND REGIMEN UNSPECIFIED)
     Route: 048
     Dates: start: 20091226, end: 20100112
  2. COUMADIN [Suspect]
     Dosage: 5 MG TABLET (DOSE AND REGIMEN UNSPECIFIED)
     Route: 048
     Dates: start: 20091226, end: 20100112
  3. DECAPEPTYL - SLOW RELEASE [Concomitant]
  4. OXAZEPAM [Suspect]
     Dosage: UNKNOWN
     Route: 048
     Dates: start: 20091226, end: 20100112
  5. HYDROCORTISONE [Concomitant]
  6. ASPEGIC 1000 [Suspect]
     Dosage: 1000 MG ORAL POWDER (DOSE AND REGIMEN UNSPECIFIED)
     Route: 048
     Dates: start: 20091226, end: 20100112
  7. MOPRAL [Suspect]
     Dosage: UNKNOWN
     Route: 048
     Dates: start: 20091226, end: 20100112

REACTIONS (3)
  - CYTOLYTIC HEPATITIS [None]
  - INTERNATIONAL NORMALISED RATIO INCREASED [None]
  - RENAL FAILURE ACUTE [None]
